FAERS Safety Report 25076117 (Version 1)
Quarter: 2025Q1

REPORT INFORMATION
  Report Type: Spontaneous
  Country: DE (occurrence: DE)
  Receive Date: 20250313
  Receipt Date: 20250313
  Transmission Date: 20250408
  Serious: Yes (Hospitalization, Other)
  Sender: BAUSCH AND LOMB
  Company Number: DE-KRKA-DE2025K03277SPO

PATIENT
  Age: 73 Year
  Sex: Male

DRUGS (4)
  1. LORAZEPAM [Suspect]
     Active Substance: LORAZEPAM
     Indication: Product used for unknown indication
     Route: 065
  2. CANDESARTAN CILEXETIL [Suspect]
     Active Substance: CANDESARTAN CILEXETIL
     Indication: Product used for unknown indication
     Route: 065
  3. IBUPROFEN [Suspect]
     Active Substance: IBUPROFEN
     Indication: Product used for unknown indication
     Route: 065
  4. ALCOHOL [Suspect]
     Active Substance: ALCOHOL
     Indication: Product used for unknown indication
     Route: 065

REACTIONS (4)
  - Suicide attempt [Not Recovered/Not Resolved]
  - Hypotension [Recovered/Resolved]
  - Fatigue [Not Recovered/Not Resolved]
  - Intentional overdose [Not Recovered/Not Resolved]
